FAERS Safety Report 16463641 (Version 1)
Quarter: 2019Q2

REPORT INFORMATION
  Report Type: Spontaneous
  Country: US (occurrence: US)
  Receive Date: 20190621
  Receipt Date: 20190621
  Transmission Date: 20190711
  Serious: No
  Sender: FDA-Public Use
  Company Number: US-ADAMAS PHARMA, LLC-2019ADA01110

PATIENT
  Age: 78 Year
  Sex: Male
  Weight: 83.9 kg

DRUGS (7)
  1. DEEP BRAIN STIMULATION [Concomitant]
     Dosage: IMPLANTATION
     Dates: start: 20181016
  2. ALEVE [Concomitant]
     Active Substance: NAPROXEN SODIUM
  3. GOCOVRI [Suspect]
     Active Substance: AMANTADINE
     Indication: DYSKINESIA
     Dosage: 137 MG, 1X/DAY AT BEDTIME
     Route: 048
     Dates: start: 20190305
  4. CARBIDOPA/LEVODOPA [Concomitant]
     Active Substance: CARBIDOPA\LEVODOPA
     Dosage: 1 TABLETS, 9X/DAY
  5. DEEP BRAIN STIMULATION [Concomitant]
     Dosage: DOCTOR ADJUSTED IT
     Dates: start: 20190516
  6. SELEGILINE [Concomitant]
     Active Substance: SELEGILINE
  7. LYRICA [Concomitant]
     Active Substance: PREGABALIN
     Dosage: 200 MG, 2X/DAY

REACTIONS (1)
  - Chest pain [Recovered/Resolved]

NARRATIVE: CASE EVENT DATE: 201904
